FAERS Safety Report 13032098 (Version 1)
Quarter: 2016Q4

REPORT INFORMATION
  Report Type: Spontaneous
  Country: US (occurrence: US)
  Receive Date: 20161215
  Receipt Date: 20161215
  Transmission Date: 20170207
  Serious: Yes (Hospitalization, Other)
  Sender: FDA-Public Use
  Company Number: US-SA-2016SA226927

PATIENT
  Age: 57 Year
  Sex: Male

DRUGS (2)
  1. ALIROCUMAB PREFILLED PEN [Concomitant]
     Active Substance: ALIROCUMAB
     Indication: BLOOD CHOLESTEROL INCREASED
     Route: 058
     Dates: start: 2015
  2. PRALUENT [Suspect]
     Active Substance: ALIROCUMAB
     Indication: BLOOD CHOLESTEROL INCREASED
     Route: 058
     Dates: start: 2015

REACTIONS (7)
  - Soft tissue disorder [Unknown]
  - Hepatic lesion [Unknown]
  - Dysuria [Unknown]
  - Back pain [Unknown]
  - Squamous cell carcinoma [Unknown]
  - Lung disorder [Unknown]
  - Prostatitis [Unknown]

NARRATIVE: CASE EVENT DATE: 201611
